FAERS Safety Report 24040471 (Version 1)
Quarter: 2024Q3

REPORT INFORMATION
  Report Type: Spontaneous
  Country: US (occurrence: US)
  Receive Date: 20240702
  Receipt Date: 20240702
  Transmission Date: 20241017
  Serious: Yes (Other)
  Sender: ASTELLAS
  Company Number: US-ASTELLAS-2024US018638

PATIENT
  Age: 89 Year
  Sex: Male

DRUGS (1)
  1. XTANDI [Suspect]
     Active Substance: ENZALUTAMIDE
     Indication: Product used for unknown indication
     Dosage: 160 MG, ONCE DAILY (4 CAPSULES OF 40MG, ONCE DAILY)
     Route: 065
     Dates: start: 202404

REACTIONS (4)
  - Foreign body in throat [Unknown]
  - Throat irritation [Unknown]
  - Product use complaint [Unknown]
  - Product size issue [Unknown]
